FAERS Safety Report 20262732 (Version 2)
Quarter: 2022Q1

REPORT INFORMATION
  Report Type: Spontaneous
  Country: CN (occurrence: CN)
  Receive Date: 20211231
  Receipt Date: 20220110
  Transmission Date: 20220423
  Serious: Yes (Hospitalization)
  Sender: FDA-Public Use
  Company Number: CN-BIOVITRUM-2021CN12925

PATIENT
  Sex: Male

DRUGS (3)
  1. DOPTELET [Suspect]
     Active Substance: AVATROMBOPAG MALEATE
     Indication: Thrombocytopenia
     Route: 048
     Dates: start: 20211102, end: 20211106
  2. Biosynthetic Human Insulin Injection [Concomitant]
     Indication: Diabetes mellitus
  3. ENTECAVIR [Concomitant]
     Active Substance: ENTECAVIR
     Indication: Hepatitis B
     Route: 048

REACTIONS (1)
  - Hypoproteinaemia [Recovering/Resolving]
